FAERS Safety Report 5777244-X (Version None)
Quarter: 2008Q2

REPORT INFORMATION
  Report Type: 
  Country: None (occurrence: None)
  Receive Date: 20080618
  Receipt Date: 20080609
  Transmission Date: 20081010
  Serious: Yes (Hospitalization)
  Sender: FDA-Public Use
  Company Number: US-ELI_LILLY_AND_COMPANY-US200806001823

PATIENT
  Sex: Female

DRUGS (2)
  1. HUMATROPE [Suspect]
  2. TOPAMAX [Concomitant]
     Indication: MIGRAINE

REACTIONS (2)
  - FEELING ABNORMAL [None]
  - MIGRAINE [None]
